FAERS Safety Report 11256366 (Version 3)
Quarter: 2015Q3

REPORT INFORMATION
  Report Type: Report from Study
  Country: US (occurrence: US)
  Receive Date: 20150709
  Receipt Date: 20150806
  Transmission Date: 20151125
  Serious: Yes (Hospitalization, Other)
  Sender: FDA-Public Use
  Company Number: US-JNJFOC-20150704959

PATIENT
  Age: 84 Year
  Sex: Female
  Weight: 54 kg

DRUGS (11)
  1. ATENOLOL. [Concomitant]
     Active Substance: ATENOLOL
     Indication: HYPERTENSION
  2. PEPCID [Concomitant]
     Active Substance: FAMOTIDINE
     Indication: GASTROOESOPHAGEAL REFLUX DISEASE
  3. SYNTHROID [Concomitant]
     Active Substance: LEVOTHYROXINE SODIUM
     Indication: HYPOTHYROIDISM
     Dosage: 137 DAILY
  4. CALCIUM AND VITAMIN D [Concomitant]
     Active Substance: CALCIUM\VITAMIN D
     Indication: SUPPLEMENTATION THERAPY
     Dosage: 600/500 UNITS PER DAY
  5. LASIX [Concomitant]
     Active Substance: FUROSEMIDE
  6. PREDNISONE. [Concomitant]
     Active Substance: PREDNISONE
  7. METAMUCIL [Concomitant]
     Active Substance: PLANTAGO SEED
  8. IMBRUVICA [Suspect]
     Active Substance: IBRUTINIB
     Indication: CHRONIC LYMPHOCYTIC LEUKAEMIA
     Dosage: LAST PERIOD 1 DAY
     Route: 048
     Dates: start: 20150511, end: 20150520
  9. IMBRUVICA [Suspect]
     Active Substance: IBRUTINIB
     Indication: CHRONIC LYMPHOCYTIC LEUKAEMIA
     Route: 048
     Dates: start: 20150527, end: 20150609
  10. FOLIC ACID. [Concomitant]
     Active Substance: FOLIC ACID
     Indication: MACULAR DEGENERATION
  11. ALBUTEROL. [Concomitant]
     Active Substance: ALBUTEROL
     Dosage: PRN

REACTIONS (10)
  - Groin pain [Recovered/Resolved]
  - Haemoglobin decreased [Recovering/Resolving]
  - Haematoma [Recovering/Resolving]
  - Urinary tract infection [Recovered/Resolved]
  - Constipation [Recovered/Resolved]
  - Rash [Unknown]
  - Cystitis klebsiella [Recovered/Resolved]
  - White blood cell count increased [Unknown]
  - Haematuria [Unknown]
  - Platelet count decreased [Unknown]

NARRATIVE: CASE EVENT DATE: 2015
